FAERS Safety Report 5091544-0 (Version None)
Quarter: 2006Q3

REPORT INFORMATION
  Report Type: 
  Country: None (occurrence: None)
  Receive Date: 20060829
  Receipt Date: 20060530
  Transmission Date: 20061208
  Serious: Yes (Hospitalization)
  Sender: FDA-Public Use
  Company Number: JP-ROCHE-450333

PATIENT
  Age: 85 Week
  Sex: Female
  Weight: 5.8 kg

DRUGS (28)
  1. MYCOPHENOLATE MOFETIL [Suspect]
     Dosage: DOSE INCREASED
     Route: 048
     Dates: start: 20041226, end: 20041226
  2. MYCOPHENOLATE MOFETIL [Suspect]
     Dosage: DOSE INCREASED
     Route: 048
     Dates: start: 20041227, end: 20041229
  3. MYCOPHENOLATE MOFETIL [Suspect]
     Dosage: DOSE INCREASED
     Route: 048
     Dates: start: 20041230, end: 20041230
  4. MYCOPHENOLATE MOFETIL [Suspect]
     Dosage: DOSE INCREASED
     Route: 048
     Dates: start: 20041231, end: 20050111
  5. MYCOPHENOLATE MOFETIL [Suspect]
     Dosage: DOSE DECREASED.
     Route: 048
     Dates: start: 20050112, end: 20050205
  6. MYCOPHENOLATE MOFETIL [Suspect]
     Dosage: DOSE DECREASED
     Route: 048
     Dates: start: 20050206, end: 20050216
  7. MYCOPHENOLATE MOFETIL [Suspect]
     Dosage: DOSE DECREASED
     Route: 048
     Dates: start: 20050217, end: 20050530
  8. MYCOPHENOLATE MOFETIL [Suspect]
     Dosage: DOSE DECREASED
     Route: 048
     Dates: start: 20050531, end: 20050807
  9. MYCOPHENOLATE MOFETIL [Suspect]
     Dosage: DOSE INCREASED
     Route: 048
     Dates: start: 20050808, end: 20050810
  10. MYCOPHENOLATE MOFETIL [Suspect]
     Dosage: DOSE INCREASED
     Route: 048
     Dates: start: 20050811, end: 20050831
  11. MYCOPHENOLATE MOFETIL [Suspect]
     Dosage: DOSE INCREASED
     Route: 048
     Dates: start: 20050901, end: 20051012
  12. MYCOPHENOLATE MOFETIL [Suspect]
     Dosage: DISCONTINUED
     Route: 048
     Dates: start: 20051013, end: 20051110
  13. TACROLIMUS HYDRATE [Suspect]
     Dosage: DOSE INCREASED
     Route: 048
  14. TACROLIMUS HYDRATE [Suspect]
     Dosage: DOSE DECREASED
     Route: 048
     Dates: start: 20050315
  15. TACROLIMUS HYDRATE [Suspect]
     Route: 048
  16. PREDONINE [Suspect]
     Route: 048
     Dates: start: 20050103
  17. PREDONINE [Suspect]
     Route: 048
  18. STEROID NOS [Suspect]
     Indication: LIVER TRANSPLANT REJECTION
     Dosage: REPORTED AS UNKNOWN DRUG (STEROID PULSE THERAPY)
     Route: 042
  19. URSO [Concomitant]
     Route: 048
  20. HOKUNALIN [Concomitant]
     Dosage: DOSE FORM: TAPE
     Route: 061
  21. TAKEPRON [Concomitant]
     Route: 048
  22. THEO-DUR [Concomitant]
     Dosage: DRUG NAME: THEODUR:DRYSYRUP THERAPY 1: 60MG ONCE DAILY, NO DATES PROVIDED. THERAPY 2: 40MG ONCE DAI+
     Route: 048
  23. ACYCLOVIR [Concomitant]
     Dosage: DRUG NAME: ASTRIC THERAPY 1: 100MG ONCE DAILY, NO START DATE PROVIDED, END DATE 12 OCT 2006. THERAP+
     Route: 048
     Dates: end: 20051013
  24. ONON [Concomitant]
     Route: 048
     Dates: end: 20051012
  25. FERRIC PYROPHOSPHATE [Concomitant]
     Dosage: REPORTED AS INCREMIN (FERRIC PYROPHOSPHATE SOLUBILITY)
     Route: 048
     Dates: end: 20050710
  26. LAC-B [Concomitant]
     Dosage: BIFIDOBACTERIA PREPARATION NO.4
     Route: 048
     Dates: end: 20050710
  27. LASIX [Concomitant]
     Route: 048
     Dates: start: 20050129
  28. SOLU-MEDROL [Concomitant]
     Route: 042
     Dates: end: 20050116

REACTIONS (5)
  - C-REACTIVE PROTEIN INCREASED [None]
  - CYTOMEGALOVIRUS INFECTION [None]
  - LIVER TRANSPLANT REJECTION [None]
  - PYREXIA [None]
  - WHEEZING [None]
